FAERS Safety Report 6457297-6 (Version None)
Quarter: 2009Q4

REPORT INFORMATION
  Report Type: 
  Country: None (occurrence: None)
  Receive Date: 20091125
  Receipt Date: 20091119
  Transmission Date: 20100525
  Serious: Yes (Hospitalization)
  Sender: FDA-Public Use
  Company Number: HU-GENENTECH-287688

PATIENT
  Sex: Male

DRUGS (16)
  1. BLINDED ANTI-CD40 [Suspect]
     Indication: DIFFUSE LARGE B-CELL LYMPHOMA
     Dosage: 8 MG, 1/WEEK
     Route: 042
     Dates: start: 20090406, end: 20090511
  2. BLINDED PLACEBO [Suspect]
     Indication: DIFFUSE LARGE B-CELL LYMPHOMA
     Dosage: 8 MG, 1/WEEK
     Route: 042
     Dates: start: 20090406, end: 20090511
  3. BLINDED ANTI-CD40 [Suspect]
     Dosage: 2 MG, X1
     Route: 042
     Dates: start: 20090223, end: 20090223
  4. BLINDED PLACEBO [Suspect]
     Dosage: 2 MG, X1
     Route: 042
     Dates: start: 20090223, end: 20090223
  5. BLINDED ANTI-CD40 [Suspect]
     Dosage: 4 MG, X1
     Route: 042
     Dates: start: 20090226, end: 20090226
  6. BLINDED PLACEBO [Suspect]
     Dosage: 4 MG, X1
     Route: 042
     Dates: start: 20090226, end: 20090226
  7. RITUXAN [Suspect]
     Indication: DIFFUSE LARGE B-CELL LYMPHOMA
     Dosage: 375 MG/M2, Q3W
     Route: 042
     Dates: start: 20090222, end: 20090427
  8. ETOPOSIDE [Suspect]
     Indication: DIFFUSE LARGE B-CELL LYMPHOMA
     Dosage: 100 MG/M2, Q3W
     Route: 042
     Dates: start: 20090226, end: 20090429
  9. CARBOPLATIN [Suspect]
     Indication: DIFFUSE LARGE B-CELL LYMPHOMA
     Dosage: 5 MG/ML, Q3W
     Route: 042
     Dates: start: 20090225, end: 20090428
  10. IFOSFAMIDE [Suspect]
     Indication: DIFFUSE LARGE B-CELL LYMPHOMA
     Dosage: 5 G/M2, Q3W
     Route: 042
     Dates: start: 20090225, end: 20090428
  11. CHLOORTALIDON [Concomitant]
     Indication: DRUG USE FOR UNKNOWN INDICATION
     Dosage: UNK
     Dates: start: 20070101
  12. LOSARTAN [Concomitant]
     Indication: DRUG USE FOR UNKNOWN INDICATION
     Dosage: UNK
     Dates: start: 20070101
  13. AMLODIPINE [Concomitant]
     Indication: DRUG USE FOR UNKNOWN INDICATION
     Dosage: UNK
     Dates: start: 20070101
  14. MOXONIDIN [Concomitant]
     Indication: DRUG USE FOR UNKNOWN INDICATION
     Dosage: UNK
     Dates: start: 20070101
  15. PIRACETAM [Concomitant]
     Indication: DRUG USE FOR UNKNOWN INDICATION
     Dosage: UNK
     Dates: start: 20070101
  16. FUROSEMIDE [Concomitant]
     Indication: DRUG USE FOR UNKNOWN INDICATION
     Dosage: UNK
     Dates: start: 20090226

REACTIONS (3)
  - ANAEMIA [None]
  - AZOTAEMIA [None]
  - URINARY TRACT INFECTION [None]
